FAERS Safety Report 23029761 (Version 3)
Quarter: 2024Q1

REPORT INFORMATION
  Report Type: Report from Study
  Country: US (occurrence: US)
  Receive Date: 20231004
  Receipt Date: 20240215
  Transmission Date: 20240409
  Serious: Yes (Hospitalization, Other)
  Sender: FDA-Public Use
  Company Number: US-ABBVIE-5434321

PATIENT
  Sex: Male

DRUGS (2)
  1. IMBRUVICA [Suspect]
     Active Substance: IBRUTINIB
     Indication: Non-Hodgkin^s lymphoma
     Dosage: DRUG END DATE: MAY 2023
     Route: 048
     Dates: start: 20230526
  2. IMBRUVICA [Suspect]
     Active Substance: IBRUTINIB
     Indication: Non-Hodgkin^s lymphoma
     Route: 048
     Dates: start: 202305

REACTIONS (7)
  - Cataract [Unknown]
  - Nasal congestion [Unknown]
  - Lymphadenopathy [Unknown]
  - Pneumonia [Unknown]
  - Product physical issue [Unknown]
  - Multiple allergies [Unknown]
  - Influenza [Unknown]

NARRATIVE: CASE EVENT DATE: 20230101
